FAERS Safety Report 7979759-2 (Version None)
Quarter: 2011Q4

REPORT INFORMATION
  Report Type: 
  Country: None (occurrence: None)
  Receive Date: 20111214
  Receipt Date: 20111129
  Transmission Date: 20120403
  Serious: Yes (Other)
  Sender: FDA-Public Use
  Company Number: DE-WATSON-2011-21243

PATIENT
  Age: 48 Year
  Sex: Female

DRUGS (1)
  1. PREDNISOLONE [Suspect]
     Indication: SINUSITIS
     Dosage: 3 X 20MG
     Route: 048

REACTIONS (1)
  - CHORIORETINOPATHY [None]
